FAERS Safety Report 7312172-X (Version None)
Quarter: 2011Q1

REPORT INFORMATION
  Report Type: 
  Country: None (occurrence: None)
  Receive Date: 20110224
  Receipt Date: 20110214
  Transmission Date: 20110831
  Serious: Yes (Hospitalization, Disabling)
  Sender: FDA-Public Use
  Company Number: A0883546A

PATIENT
  Age: 57 Year
  Sex: Female

DRUGS (1)
  1. AVANDIA [Suspect]
     Dosage: 4MG PER DAY
     Route: 048
     Dates: start: 20060607, end: 20100324

REACTIONS (4)
  - NAUSEA [None]
  - CEREBROVASCULAR ACCIDENT [None]
  - ABDOMINAL PAIN LOWER [None]
  - VOMITING [None]
